FAERS Safety Report 18129874 (Version 1)
Quarter: 2020Q3

REPORT INFORMATION
  Report Type: Spontaneous
  Country: US (occurrence: US)
  Receive Date: 20200807
  Receipt Date: 20200807
  Transmission Date: 20201103
  Serious: Yes (Death)
  Sender: FDA-Public Use
  Company Number: None

PATIENT
  Age: 68 Year
  Sex: Female

DRUGS (3)
  1. OCTREOTIDE 100MCG/ML SDV [Suspect]
     Active Substance: OCTREOTIDE
     Indication: PRODUCT USED FOR UNKNOWN INDICATION
     Dosage: 1ML BID X 30 D SQ
     Route: 058
     Dates: end: 20200731
  2. FEROSUL [Concomitant]
     Active Substance: FERROUS SULFATE
  3. XIFAXAN [Concomitant]
     Active Substance: RIFAXIMIN

REACTIONS (1)
  - Death [None]

NARRATIVE: CASE EVENT DATE: 20200731
